FAERS Safety Report 7034211-6 (Version None)
Quarter: 2010Q4

REPORT INFORMATION
  Report Type: 
  Country: None (occurrence: None)
  Receive Date: 20101008
  Receipt Date: 20100929
  Transmission Date: 20110411
  Serious: Yes (Congenital Anomaly)
  Sender: FDA-Public Use
  Company Number: US-BIOGENIDEC-2010BI034359

PATIENT

DRUGS (1)
  1. TYSABRI [Suspect]
     Indication: DRUG EXPOSURE DURING PREGNANCY
     Route: 042
     Dates: start: 20080321, end: 20100514

REACTIONS (1)
  - TRISOMY 21 [None]
